FAERS Safety Report 6509016-2 (Version None)
Quarter: 2009Q4

REPORT INFORMATION
  Report Type: 
  Country: None (occurrence: None)
  Receive Date: 20091221
  Receipt Date: 20090910
  Transmission Date: 20100525
  Serious: No
  Sender: FDA-Public Use
  Company Number: US-ASTRAZENECA-2009SE12639

PATIENT
  Age: 81 Year
  Sex: Female
  Weight: 70.3 kg

DRUGS (1)
  1. CRESTOR [Suspect]
     Indication: BLOOD CHOLESTEROL INCREASED
     Route: 048
     Dates: end: 20090301

REACTIONS (4)
  - CONSTIPATION [None]
  - MALAISE [None]
  - NAUSEA [None]
  - VOMITING [None]
